FAERS Safety Report 13790701 (Version 2)
Quarter: 2017Q3

REPORT INFORMATION
  Report Type: Spontaneous
  Country: US (occurrence: US)
  Receive Date: 20170725
  Receipt Date: 20170807
  Transmission Date: 20171127
  Serious: No
  Sender: FDA-Public Use
  Company Number: US-BAYER-2017-141580

PATIENT
  Age: 73 Year
  Sex: Female
  Weight: 74.83 kg

DRUGS (6)
  1. SIMVASTATIN. [Concomitant]
     Active Substance: SIMVASTATIN
     Dosage: 20 MG, QD
  2. SYNTHROID [Concomitant]
     Active Substance: LEVOTHYROXINE SODIUM
  3. ALEVE [Suspect]
     Active Substance: NAPROXEN SODIUM
     Indication: PAIN
     Dosage: 1 DF, UNK
     Route: 048
     Dates: start: 20170718
  4. METOPROLOL. [Concomitant]
     Active Substance: METOPROLOL
     Dosage: 1 DF, QD
  5. TYLENOL ARTHRITIS PAIN [Concomitant]
     Active Substance: ACETAMINOPHEN
     Dosage: 2 DF, BID
     Dates: start: 20170720
  6. BAYER LOW DOSE [Concomitant]
     Active Substance: ASPIRIN
     Dosage: 1 DF, QD

REACTIONS (3)
  - Product use issue [Unknown]
  - Adverse drug reaction [Unknown]
  - Peripheral swelling [Not Recovered/Not Resolved]

NARRATIVE: CASE EVENT DATE: 20170719
